FAERS Safety Report 7677392-3 (Version None)
Quarter: 2011Q3

REPORT INFORMATION
  Report Type: 
  Country: None (occurrence: None)
  Receive Date: 20110810
  Receipt Date: 20110810
  Transmission Date: 20111222
  Serious: Yes (Other)
  Sender: FDA-Public Use
  Company Number: None

PATIENT
  Age: 2 Year
  Sex: Male
  Weight: 14.5151 kg

DRUGS (1)
  1. SINGULAIR [Suspect]

REACTIONS (1)
  - DYSPHEMIA [None]
